FAERS Safety Report 23666392 (Version 1)
Quarter: 2024Q1

REPORT INFORMATION
  Report Type: Spontaneous
  Country: NL (occurrence: NL)
  Receive Date: 20240324
  Receipt Date: 20240324
  Transmission Date: 20240410
  Serious: Yes (Hospitalization, Other)
  Sender: FDA-Public Use
  Company Number: NL-BAXTER-2024BAX011630

PATIENT
  Age: 76 Year
  Sex: Female
  Weight: 63 kg

DRUGS (11)
  1. DOXORUBICIN [Suspect]
     Active Substance: DOXORUBICIN
     Indication: Diffuse large B-cell lymphoma
     Dosage: 90 MILLIGRAM, EVERY 3 WEEKS, ONGOING
     Route: 042
     Dates: start: 20240104
  2. PREDNISONE [Suspect]
     Active Substance: PREDNISONE
     Indication: Diffuse large B-cell lymphoma
     Dosage: 100 MILLIGRAM, DAILY,  C1-C6, DAY 1-5, EVERY 1 DAYS, ONGOING
     Route: 048
     Dates: start: 20240104
  3. RITUXIMAB [Suspect]
     Active Substance: RITUXIMAB
     Indication: Diffuse large B-cell lymphoma
     Dosage: 600 MILLIGRAM,EVERY 3 WEEKS, ONGOING
     Route: 042
     Dates: start: 20240104
  4. CYCLOPHOSPHAMIDE [Suspect]
     Active Substance: CYCLOPHOSPHAMIDE
     Indication: Diffuse large B-cell lymphoma
     Dosage: 1300 MILLIGRAM,  EVERY 3 WEEKS, ONGOING
     Route: 042
     Dates: start: 20240104
  5. EPCORITAMAB [Suspect]
     Active Substance: EPCORITAMAB
     Indication: Diffuse large B-cell lymphoma
     Dosage: UNK
     Route: 065
  6. VINCRISTINE [Suspect]
     Active Substance: VINCRISTINE
     Indication: Diffuse large B-cell lymphoma
     Dosage: 2 MILLIGRAM, EVERY 3 WEEKS, ONGOING
     Route: 042
     Dates: start: 20240104
  7. LEVOTHYROXINE [Concomitant]
     Active Substance: LEVOTHYROXINE\LEVOTHYROXINE SODIUM
     Indication: Hypothyroidism
     Dosage: 112 MICROGRAM, EVERY OTHER DAY
     Route: 065
     Dates: start: 20230519
  8. PREDNISONE [Concomitant]
     Active Substance: PREDNISONE
     Indication: Premedication
     Dosage: 100 MILLIGRAM, EVERY OTHER DAY
     Route: 065
     Dates: start: 20231229, end: 20240103
  9. FENTANYL [Concomitant]
     Active Substance: FENTANYL\FENTANYL CITRATE
     Indication: Pain
     Dosage: 100 MICROGRAM, 2/DAYS
     Route: 065
     Dates: start: 20231221, end: 20240111
  10. MIDAZOLAM [Concomitant]
     Active Substance: MIDAZOLAM
     Indication: Insomnia
     Dosage: 15 MILLIGRAM, EVERY OTHER DAY
     Route: 065
     Dates: start: 20231213, end: 20240111
  11. PANTOPRAZOLE SODIUM [Concomitant]
     Active Substance: PANTOPRAZOLE SODIUM
     Indication: Nausea
     Dosage: 40 MILLIGRAM,  2/DAYS
     Route: 065
     Dates: start: 20231211

REACTIONS (1)
  - Febrile neutropenia [Recovered/Resolved]

NARRATIVE: CASE EVENT DATE: 20240114
